FAERS Safety Report 6541233-8 (Version None)
Quarter: 2010Q1

REPORT INFORMATION
  Report Type: 
  Country: None (occurrence: None)
  Receive Date: 20100118
  Receipt Date: 20100107
  Transmission Date: 20100710
  Serious: Yes (Hospitalization, Other)
  Sender: FDA-Public Use
  Company Number: PE-ELI_LILLY_AND_COMPANY-PE200911001142

PATIENT
  Sex: Female

DRUGS (2)
  1. HUMULIN N [Suspect]
     Indication: TYPE 2 DIABETES MELLITUS
     Dosage: UNK, EACH MORNING
     Route: 065
  2. HUMULIN N [Suspect]
     Dosage: UNK, EACH EVENING
     Route: 065

REACTIONS (6)
  - BLOOD GLUCOSE INCREASED [None]
  - DIABETIC FOOT [None]
  - DIABETIC FOOT INFECTION [None]
  - HYPOGLYCAEMIA [None]
  - NECROSIS [None]
  - THERAPEUTIC RESPONSE DECREASED [None]
